FAERS Safety Report 5989354-2 (Version None)
Quarter: 2008Q4

REPORT INFORMATION
  Report Type: 
  Country: None (occurrence: None)
  Receive Date: 20081205
  Receipt Date: 20081120
  Transmission Date: 20090506
  Serious: Yes (Death, Hospitalization)
  Sender: FDA-Public Use
  Company Number: 2008US002913

PATIENT
  Age: 46 Year
  Sex: Male

DRUGS (11)
  1. PROGRAF [Suspect]
     Indication: HEART TRANSPLANT
     Dosage: 0.5 MG, BID, ORAL
     Route: 048
     Dates: start: 20010403, end: 20080827
  2. CELLCEPT [Concomitant]
  3. PREDNISONE [Concomitant]
  4. PRILOSEC [Concomitant]
  5. CALCIUM (ASCORBIC ACID) [Concomitant]
  6. LISINOPRIL [Concomitant]
  7. LASIX [Concomitant]
  8. PRAVACHOL [Concomitant]
  9. CELEXA (CELECOXIB) [Concomitant]
  10. MULTIVITAMIN (SELENIUM, IODINE, ZINC, COPPER, CHROMIUM, MANGANESE, MAG [Concomitant]
  11. COREG (VARVEDILOL) [Concomitant]

REACTIONS (10)
  - BLOOD MAGNESIUM INCREASED [None]
  - CARDIAC ARREST [None]
  - CARDIOMEGALY [None]
  - ELECTROCARDIOGRAM T WAVE ABNORMAL [None]
  - HEART TRANSPLANT REJECTION [None]
  - HEPATIC CONGESTION [None]
  - LEFT ATRIAL DILATATION [None]
  - LEFT VENTRICULAR HYPERTROPHY [None]
  - PERICARDIAL EFFUSION [None]
  - UNRESPONSIVE TO STIMULI [None]
